FAERS Safety Report 9316597 (Version 1)
Quarter: 2013Q1

REPORT INFORMATION
  Report Type: Spontaneous
  Country: US (occurrence: None)
  Receive Date: 20130328
  Receipt Date: 20130328
  Transmission Date: 20140127
  Serious: No
  Sender: FDA-Public Use
  Company Number: None

PATIENT
  Age: 39 Year
  Sex: Female

DRUGS (1)
  1. TECFIDERA [Suspect]
     Indication: MULTIPLE SCLEROSIS
     Dosage: 120 MG BID X 1 WEEK PO?240 MG BID PO ?2 WEEKS
     Route: 048

REACTIONS (3)
  - Abdominal pain [None]
  - Nausea [None]
  - Vomiting [None]
